FAERS Safety Report 7335777-9 (Version None)
Quarter: 2011Q1

REPORT INFORMATION
  Report Type: 
  Country: None (occurrence: None)
  Receive Date: 20110301
  Receipt Date: 20110301
  Transmission Date: 20110831
  Serious: No
  Sender: FDA-Public Use
  Company Number: None

PATIENT
  Sex: Female
  Weight: 64.8644 kg

DRUGS (1)
  1. CITALOPRAM HYDROBROMIDE [Suspect]
     Indication: DEPRESSION
     Dosage: 1 TABLET DAILY PO
     Route: 048
     Dates: start: 20110107, end: 20110224

REACTIONS (8)
  - PANIC ATTACK [None]
  - AGGRESSION [None]
  - INSOMNIA [None]
  - HEADACHE [None]
  - RESTLESSNESS [None]
  - AGITATION [None]
  - HOSTILITY [None]
  - DEPRESSION [None]
